FAERS Safety Report 9813044 (Version 2)
Quarter: 2014Q1

REPORT INFORMATION
  Report Type: Report from Study
  Country: US (occurrence: US)
  Receive Date: 20140113
  Receipt Date: 20140113
  Transmission Date: 20141002
  Serious: Yes (Death, Life-Threatening)
  Sender: FDA-Public Use
  Company Number: US-NOVOPROD-397098

PATIENT
  Age: 64 Year
  Sex: Female
  Weight: 105.6 kg

DRUGS (1)
  1. LIRAGLUTIDE FLEXPEN [Suspect]
     Indication: TYPE 2 DIABETES MELLITUS
     Dosage: 1.8,MG,QD
     Route: 058
     Dates: start: 20101201, end: 20131207

REACTIONS (1)
  - Chronic obstructive pulmonary disease [Fatal]
